FAERS Safety Report 16686662 (Version 1)
Quarter: 2019Q3

REPORT INFORMATION
  Report Type: Spontaneous
  Country: NL (occurrence: NL)
  Receive Date: 20190809
  Receipt Date: 20190809
  Transmission Date: 20191004
  Serious: Yes (Other)
  Sender: FDA-Public Use
  Company Number: NL-TEVA-2019-NL-1090265

PATIENT
  Age: 46 Year
  Sex: Female
  Weight: 43 kg

DRUGS (2)
  1. METOPROLOL TABLET MET GEREGULEERDE AFGIFTE, 100 MG (MILLIGRAM) [Suspect]
     Active Substance: METOPROLOL
     Indication: HYPERTENSION
     Dosage: 1X DAY 1X PIECE, 100 MILLIGRAM, 1 DAY
     Dates: start: 20130101, end: 20190605
  2. ENALAPRIL TABLET, 40 MG (MILLIGRAM) [Suspect]
     Active Substance: ENALAPRIL
     Indication: HYPERTENSION
     Dosage: 1X DAY 1X PIECE
     Dates: start: 20120101

REACTIONS (2)
  - Hypoglycaemia [Recovered/Resolved]
  - Drug ineffective [Recovered/Resolved]

NARRATIVE: CASE EVENT DATE: 20130101
